FAERS Safety Report 24526529 (Version 1)
Quarter: 2024Q4

REPORT INFORMATION
  Report Type: Report from Study
  Country: US (occurrence: US)
  Receive Date: 20241021
  Receipt Date: 20241021
  Transmission Date: 20250115
  Serious: No
  Sender: ROCHE
  Company Number: US-ROCHE-2683260

PATIENT
  Age: 59 Year
  Sex: Male
  Weight: 81.65 kg

DRUGS (17)
  1. ZELBORAF [Suspect]
     Active Substance: VEMURAFENIB
     Indication: Metabolic disorder
     Dosage: TAKE 1 TABLET BY MOUTH TWICE A DAY (MOST RECENT PACK EXPIRY DATE: 18/MAY/2022)
     Route: 048
     Dates: start: 2015
  2. ZELBORAF [Suspect]
     Active Substance: VEMURAFENIB
     Indication: Histiocytosis
     Route: 048
  3. ZELBORAF [Suspect]
     Active Substance: VEMURAFENIB
     Indication: Erdheim-Chester disease
     Route: 048
  4. ZELBORAF [Suspect]
     Active Substance: VEMURAFENIB
     Route: 048
  5. ZELBORAF [Suspect]
     Active Substance: VEMURAFENIB
     Route: 048
  6. ASPIRIN;CALCIUM CARBONATE [Concomitant]
     Dosage: ASPIRIN 81-300 MG CALCIUM 777 MG TABLET
     Route: 048
  7. GLUCOPHAGE [Concomitant]
     Active Substance: METFORMIN HYDROCHLORIDE
     Dosage: EVERY MORNING WITH BREAKFAST
     Route: 048
  8. CRESTOR [Concomitant]
     Active Substance: ROSUVASTATIN CALCIUM
     Route: 048
  9. SENNOSIDES [Concomitant]
     Active Substance: SENNOSIDES
     Route: 048
  10. MELATONIN [Concomitant]
     Active Substance: MELATONIN
     Dosage: EVERY NIGHT
     Route: 048
  11. COREG [Concomitant]
     Active Substance: CARVEDILOL
     Route: 048
  12. PROZAC [Concomitant]
     Active Substance: FLUOXETINE HYDROCHLORIDE
  13. ROSUVASTATIN [Concomitant]
     Active Substance: ROSUVASTATIN
     Indication: Blood cholesterol increased
     Route: 048
  14. CARVEDILOL [Concomitant]
     Active Substance: CARVEDILOL
     Indication: Hypertension
     Route: 048
  15. METFORMIN [Concomitant]
     Active Substance: METFORMIN HYDROCHLORIDE
     Indication: Diabetes insipidus
     Route: 048
  16. METFORMIN [Concomitant]
     Active Substance: METFORMIN HYDROCHLORIDE
     Route: 048
  17. FLUOXETINE [Concomitant]
     Active Substance: FLUOXETINE HYDROCHLORIDE
     Indication: Affect lability
     Dates: start: 2020

REACTIONS (10)
  - Tooth loss [Not Recovered/Not Resolved]
  - Dental caries [Unknown]
  - Anger [Recovering/Resolving]
  - Tooth fracture [Unknown]
  - Impulse-control disorder [Unknown]
  - Ill-defined disorder [Not Recovered/Not Resolved]
  - Affect lability [Unknown]
  - Speech disorder [Unknown]
  - Treatment noncompliance [Unknown]
  - Product dose omission issue [Unknown]

NARRATIVE: CASE EVENT DATE: 20180101
